FAERS Safety Report 10745489 (Version 1)
Quarter: 2015Q1

REPORT INFORMATION
  Report Type: Spontaneous
  Country: US (occurrence: US)
  Receive Date: 20150128
  Receipt Date: 20150128
  Transmission Date: 20150721
  Serious: No
  Sender: FDA-Public Use
  Company Number: US-ELI_LILLY_AND_COMPANY-US201501002687

PATIENT
  Age: 67 Year
  Sex: Female

DRUGS (2)
  1. FORTEO [Suspect]
     Active Substance: TERIPARATIDE
     Dosage: UNK UNK, UNKNOWN
  2. FORTEO [Suspect]
     Active Substance: TERIPARATIDE
     Indication: HIP FRACTURE
     Dosage: UNK UNK, UNKNOWN
     Dates: start: 20141030

REACTIONS (2)
  - Off label use [Unknown]
  - Underdose [Unknown]

NARRATIVE: CASE EVENT DATE: 20141030
